FAERS Safety Report 10532875 (Version 2)
Quarter: 2014Q4

REPORT INFORMATION
  Report Type: Report from Study
  Country: CA (occurrence: CA)
  Receive Date: 20141022
  Receipt Date: 20141112
  Transmission Date: 20150529
  Serious: Yes (Death)
  Sender: FDA-Public Use
  Company Number: PHHY2014CA137293

PATIENT
  Age: 24 Year
  Sex: Male

DRUGS (2)
  1. OXYBUTYNIN [Concomitant]
     Active Substance: OXYBUTYNIN
     Indication: PRODUCT USED FOR UNKNOWN INDICATION
     Dosage: 30 MG, QHS
     Route: 065
     Dates: start: 2012
  2. CLOZARIL [Suspect]
     Active Substance: CLOZAPINE
     Indication: SCHIZOPHRENIA
     Dosage: 450 MG, QD
     Route: 048
     Dates: start: 20120918

REACTIONS (3)
  - Weight increased [Unknown]
  - Unresponsive to stimuli [Fatal]
  - Death [Fatal]

NARRATIVE: CASE EVENT DATE: 20141009
